FAERS Safety Report 24538884 (Version 1)
Quarter: 2024Q4

REPORT INFORMATION
  Report Type: Spontaneous
  Country: TG (occurrence: TG)
  Receive Date: 20241023
  Receipt Date: 20241023
  Transmission Date: 20250115
  Serious: Yes (Hospitalization, Other)
  Sender: SANDOZ
  Company Number: TG-002147023-PHHY2019TG038171

PATIENT
  Age: 80 Year
  Sex: Male

DRUGS (2)
  1. ANAFRANIL [Suspect]
     Active Substance: CLOMIPRAMINE HYDROCHLORIDE
     Indication: Depression
     Dosage: 75 MG, QD
     Route: 065
  2. DOMPERIDONE [Suspect]
     Active Substance: DOMPERIDONE
     Indication: Nausea
     Dosage: 10 MG, TID
     Route: 065

REACTIONS (10)
  - End stage renal disease [Unknown]
  - Hyperkalaemia [Recovered/Resolved]
  - Asthenia [Recovering/Resolving]
  - Decreased appetite [Recovering/Resolving]
  - Weight decreased [Unknown]
  - Nausea [Unknown]
  - Hypocalcaemia [Unknown]
  - Constipation [Recovering/Resolving]
  - Lymphopenia [Unknown]
  - Hyperfibrinogenaemia [Unknown]

NARRATIVE: CASE EVENT DATE: 20130401
